FAERS Safety Report 9494275 (Version 3)
Quarter: 2013Q4

REPORT INFORMATION
  Report Type: Spontaneous
  Country: US (occurrence: None)
  Receive Date: 20130828
  Receipt Date: 20131028
  Transmission Date: 20140711
  Serious: Yes (Other)
  Sender: FDA-Public Use
  Company Number: 2013US002329

PATIENT
  Age: 35 Year
  Sex: Female
  Weight: 111 kg

DRUGS (4)
  1. ICLUSIG [Suspect]
     Indication: CHRONIC MYELOID LEUKAEMIA
     Route: 048
     Dates: start: 20130718
  2. VICODIN (HYDROCODONE BITARTRATE, PARACETAMOL) [Concomitant]
  3. VALIUM (DIAZEPAM) [Concomitant]
  4. MIRALAX (MACROGO) [Concomitant]

REACTIONS (2)
  - Atypical pneumonia [None]
  - Atypical pneumonia [None]
